FAERS Safety Report 23816492 (Version 2)
Quarter: 2024Q3

REPORT INFORMATION
  Report Type: Report from Study
  Country: EG (occurrence: EG)
  Receive Date: 20240503
  Receipt Date: 20240820
  Transmission Date: 20241017
  Serious: No
  Sender: SANDOZ
  Company Number: EG-SANDOZ-SDZ2024EG036876

PATIENT
  Sex: Female

DRUGS (1)
  1. OMNITROPE [Suspect]
     Active Substance: SOMATROPIN
     Indication: Product used for unknown indication
     Dosage: 10 MG
     Route: 058

REACTIONS (5)
  - Fatigue [Not Recovered/Not Resolved]
  - Peripheral swelling [Not Recovered/Not Resolved]
  - Incorrect dose administered [Unknown]
  - Wrong technique in product usage process [Unknown]
  - Device delivery system issue [Unknown]
